FAERS Safety Report 6250321-5 (Version None)
Quarter: 2009Q2

REPORT INFORMATION
  Report Type: 
  Country: None (occurrence: None)
  Receive Date: 20090626
  Receipt Date: 20090626
  Transmission Date: 20091009
  Serious: No
  Sender: FDA-Public Use
  Company Number: None

PATIENT
  Age: 47 Year
  Sex: Male
  Weight: 83.9154 kg

DRUGS (2)
  1. ZICAM NASAL SWABS [Suspect]
     Indication: HYPERSENSITIVITY
     Dosage: PER INSTRUCTIONS ON BOX AS DIRECTED NASAL
     Route: 045
     Dates: start: 20000401, end: 20000408
  2. ZICAM NASAL SWABS [Suspect]
     Indication: NASAL CONGESTION
     Dosage: PER INSTRUCTIONS ON BOX AS DIRECTED NASAL
     Route: 045
     Dates: start: 20000401, end: 20000408

REACTIONS (1)
  - ANOSMIA [None]
